FAERS Safety Report 9957417 (Version 1)
Quarter: 2014Q1

REPORT INFORMATION
  Report Type: Report from Study
  Country: US (occurrence: US)
  Receive Date: 20140304
  Receipt Date: 20140304
  Transmission Date: 20141002
  Serious: No
  Sender: FDA-Public Use
  Company Number: US-ABBVIE-13P-163-1092803-00

PATIENT
  Age: 22 Year
  Sex: Female

DRUGS (4)
  1. HUMIRA [Suspect]
     Indication: RHEUMATOID ARTHRITIS
     Dates: start: 201206
  2. CELEXA [Concomitant]
     Indication: ANXIETY
     Route: 048
  3. CELEXA [Concomitant]
     Indication: HEADACHE
  4. YAZ [Concomitant]
     Indication: CONTRACEPTION
     Dosage: DAILY
     Route: 048

REACTIONS (5)
  - Dizziness [Not Recovered/Not Resolved]
  - Nausea [Not Recovered/Not Resolved]
  - Sinus congestion [Not Recovered/Not Resolved]
  - Injection site erythema [Not Recovered/Not Resolved]
  - Injection site nodule [Not Recovered/Not Resolved]
